FAERS Safety Report 13736828 (Version 2)
Quarter: 2017Q3

REPORT INFORMATION
  Report Type: Spontaneous
  Country: JP (occurrence: JP)
  Receive Date: 20170710
  Receipt Date: 20170810
  Transmission Date: 20171127
  Serious: Yes (Death, Life-Threatening)
  Sender: FDA-Public Use
  Company Number: JP-BAUSCH-BL-2017-018992

PATIENT
  Age: 11 Year
  Sex: Male
  Weight: 38 kg

DRUGS (6)
  1. TALION [Suspect]
     Active Substance: BEPOTASTINE
     Indication: RHINITIS ALLERGIC
     Route: 048
     Dates: start: 20170529, end: 20170601
  2. ZITHROMAC [Concomitant]
     Active Substance: AZITHROMYCIN DIHYDRATE
     Indication: MYCOPLASMA INFECTION
     Route: 048
     Dates: start: 20170529, end: 20170601
  3. NASONEX [Concomitant]
     Active Substance: MOMETASONE FUROATE
     Indication: RHINITIS ALLERGIC
     Dosage: 1 SPRAY PER NASAL PASSAGE, ONCE
     Route: 045
     Dates: start: 20170529
  4. SINGULAIR [Concomitant]
     Active Substance: MONTELUKAST SODIUM
     Indication: RHINITIS ALLERGIC
     Route: 048
     Dates: start: 20170529
  5. AZUNOL GARGLE LIQUID [Concomitant]
     Indication: PRODUCT USED FOR UNKNOWN INDICATION
     Route: 049
     Dates: start: 20170529
  6. BIOFERMIN R [Concomitant]
     Active Substance: BACILLUS SUBTILIS\LACTOBACILLUS ACIDOPHILUS\STREPTOCOCCUS FAECAIS
     Indication: GASTROINTESTINAL DISORDER
     Route: 048
     Dates: start: 20170529

REACTIONS (1)
  - Near drowning [Fatal]

NARRATIVE: CASE EVENT DATE: 20170601
